FAERS Safety Report 5803444-6 (Version None)
Quarter: 2008Q3

REPORT INFORMATION
  Report Type: 
  Country: None (occurrence: None)
  Receive Date: 20080708
  Receipt Date: 20080624
  Transmission Date: 20090109
  Serious: Yes (Life-Threatening, Other)
  Sender: FDA-Public Use
  Company Number: PHHO2008FR07888

PATIENT
  Sex: Male
  Weight: 60 kg

DRUGS (1)
  1. GLEEVEC [Suspect]
     Indication: ACUTE LYMPHOCYTIC LEUKAEMIA
     Dosage: 800 MG, QD
     Route: 048
     Dates: start: 20080417, end: 20080506

REACTIONS (18)
  - APLASIA [None]
  - ARRHYTHMIA [None]
  - ATRIAL FIBRILLATION [None]
  - BLOOD BILIRUBIN INCREASED [None]
  - CITROBACTER INFECTION [None]
  - COUGH [None]
  - GASTROSTOMY [None]
  - HYPOTONIA [None]
  - INTRACRANIAL VENOUS SINUS THROMBOSIS [None]
  - MECHANICAL VENTILATION [None]
  - NAUSEA [None]
  - NERVOUS SYSTEM DISORDER [None]
  - PNEUMONIA ASPIRATION [None]
  - PSYCHOMOTOR RETARDATION [None]
  - PYREXIA [None]
  - RESPIRATORY DISTRESS [None]
  - TRACHEOSTOMY [None]
  - VOMITING [None]
